FAERS Safety Report 24417931 (Version 2)
Quarter: 2024Q4

REPORT INFORMATION
  Report Type: Spontaneous
  Country: US (occurrence: US)
  Receive Date: 20241009
  Receipt Date: 20241107
  Transmission Date: 20250115
  Serious: No
  Sender: PFIZER
  Company Number: US-PFIZER INC-PV202400130607

PATIENT
  Age: 71 Year
  Sex: Female

DRUGS (1)
  1. TUKYSA [Suspect]
     Active Substance: TUCATINIB
     Dosage: 150MG, TWO TABLETS TWICE A DAY

REACTIONS (2)
  - Hepatic enzyme increased [Unknown]
  - Central nervous system lesion [Unknown]
